FAERS Safety Report 24997341 (Version 1)
Quarter: 2025Q1

REPORT INFORMATION
  Report Type: Spontaneous
  Country: US (occurrence: US)
  Receive Date: 20250222
  Receipt Date: 20250222
  Transmission Date: 20250408
  Serious: No
  Sender: JOHNSON AND JOHNSON
  Company Number: US-ABBVIE-6144154

PATIENT

DRUGS (1)
  1. IMBRUVICA [Suspect]
     Active Substance: IBRUTINIB
     Indication: Waldenstrom^s macroglobulinaemia
     Route: 048

REACTIONS (7)
  - Tooth extraction [Unknown]
  - Post procedural infection [Unknown]
  - Diplopia [Unknown]
  - Hypoaesthesia eye [Unknown]
  - Eye pain [Unknown]
  - Incorrect dose administered [Unknown]
  - Adverse drug reaction [Unknown]

NARRATIVE: CASE EVENT DATE: 20241201
